FAERS Safety Report 25170119 (Version 2)
Quarter: 2025Q2

REPORT INFORMATION
  Report Type: Spontaneous
  Country: JP (occurrence: JP)
  Receive Date: 20250407
  Receipt Date: 20250622
  Transmission Date: 20250716
  Serious: Yes (Other)
  Sender: SANOFI AVENTIS
  Company Number: JP-SA-2025SA096866

PATIENT
  Age: 86 Year
  Sex: Male

DRUGS (9)
  1. DUPIXENT [Suspect]
     Active Substance: DUPILUMAB
     Indication: Neurodermatitis
     Route: 058
     Dates: start: 2025, end: 20250327
  2. DUPIXENT [Suspect]
     Active Substance: DUPILUMAB
     Route: 058
     Dates: start: 20250127, end: 20250127
  3. PREDNISOLONE [Suspect]
     Active Substance: PREDNISOLONE
     Indication: Neurodermatitis
     Dosage: 5 MG, QD AFTER BREAKFAST
     Route: 048
  4. ALENDRONATE SODIUM [Suspect]
     Active Substance: ALENDRONATE SODIUM
     Indication: Osteoporosis
     Dosage: 35 MG, QW (ONCE A DAY AT WAKING UP)
     Route: 048
  5. ATOVAQUONE [Suspect]
     Active Substance: ATOVAQUONE
     Indication: Prophylaxis
     Dosage: 5 ML X 2 SACHETS, QD AFTER BREAKFAST
     Route: 048
  6. VONOPRAZAN FUMARATE [Concomitant]
     Active Substance: VONOPRAZAN FUMARATE
     Indication: Gastrooesophageal reflux disease
     Dosage: 10 MG, QD
     Route: 048
  7. TAMSULOSIN HYDROCHLORIDE [Concomitant]
     Active Substance: TAMSULOSIN HYDROCHLORIDE
     Indication: Benign prostatic hyperplasia
     Dosage: UNK UNK, QD
     Route: 048
  8. IRBESARTAN [Concomitant]
     Active Substance: IRBESARTAN
     Indication: Hypertension
     Dosage: UNK UNK, QD
     Route: 048
  9. PITAVASTATIN CALCIUM [Concomitant]
     Active Substance: PITAVASTATIN CALCIUM
     Indication: Hyperlipidaemia
     Dosage: 1 UNK, QD
     Route: 048

REACTIONS (2)
  - Drug-induced liver injury [Recovering/Resolving]
  - Malaise [Recovering/Resolving]

NARRATIVE: CASE EVENT DATE: 20250327
